FAERS Safety Report 21504395 (Version 2)
Quarter: 2022Q4

REPORT INFORMATION
  Report Type: Spontaneous
  Country: JP (occurrence: JP)
  Receive Date: 20221025
  Receipt Date: 20221209
  Transmission Date: 20230112
  Serious: Yes (Other)
  Sender: FDA-Public Use
  Company Number: JP-AMGEN-JPNSP2022179561

PATIENT
  Sex: Female

DRUGS (1)
  1. LUMAKRAS [Suspect]
     Active Substance: SOTORASIB
     Indication: Non-small cell lung cancer recurrent
     Dosage: 960 MILLIGRAM
     Route: 048
     Dates: start: 20220609, end: 202210

REACTIONS (4)
  - Non-small cell lung cancer recurrent [Unknown]
  - Decreased appetite [Unknown]
  - Fatigue [Unknown]
  - Diarrhoea [Unknown]
